FAERS Safety Report 13070636 (Version 1)
Quarter: 2016Q4

REPORT INFORMATION
  Report Type: Spontaneous
  Country: AU (occurrence: AU)
  Receive Date: 20161229
  Receipt Date: 20161229
  Transmission Date: 20170207
  Serious: Yes (Other)
  Sender: FDA-Public Use
  Company Number: AU-AUROBINDO-AUR-APL-2014-00666

PATIENT

DRUGS (1)
  1. FRANXONE 0.5G [Suspect]
     Active Substance: CEFTRIAXONE
     Indication: GONORRHOEA
     Dosage: 500 MG,UNK,
     Route: 030

REACTIONS (1)
  - Treatment failure [Unknown]
